FAERS Safety Report 7097297-9 (Version None)
Quarter: 2010Q4

REPORT INFORMATION
  Report Type: 
  Country: None (occurrence: None)
  Receive Date: 20101111
  Receipt Date: 20100927
  Transmission Date: 20110411
  Serious: Yes (Death, Life-Threatening, Other)
  Sender: FDA-Public Use
  Company Number: US-BAXTER-2010BH007688

PATIENT
  Age: 86 Year
  Sex: Female
  Weight: 52 kg

DRUGS (36)
  1. HEPARIN SODIUM INJECTION [Suspect]
     Indication: AORTIC BYPASS
     Route: 042
     Dates: start: 20080225, end: 20080225
  2. HEPARIN SODIUM INJECTION [Suspect]
     Indication: CENTRAL VENOUS CATHETERISATION
     Route: 042
     Dates: start: 20080225, end: 20080225
  3. HEPARIN SODIUM INJECTION [Suspect]
     Route: 065
     Dates: start: 20080225, end: 20080225
  4. HEPARIN SODIUM INJECTION [Suspect]
     Route: 065
     Dates: start: 20080225, end: 20080225
  5. HEPARIN SODIUM INJECTION [Suspect]
     Route: 058
     Dates: start: 20080407, end: 20080409
  6. HEPARIN SODIUM INJECTION [Suspect]
     Route: 058
     Dates: start: 20080407, end: 20080409
  7. HEPARIN SODIUM INJECTION [Suspect]
     Route: 042
     Dates: start: 20080521, end: 20080523
  8. HEPARIN SODIUM INJECTION [Suspect]
     Route: 042
     Dates: start: 20080521, end: 20080523
  9. HEPARIN SODIUM 1,000 UNITS AND SODIUM CHLORIDE 0.9% [Suspect]
     Indication: PRODUCT USED FOR UNKNOWN INDICATION
     Route: 042
     Dates: start: 20100521, end: 20100521
  10. ENALAPRIL MALEATE [Concomitant]
     Indication: PRODUCT USED FOR UNKNOWN INDICATION
     Route: 065
  11. LOVASTATIN [Concomitant]
     Indication: PRODUCT USED FOR UNKNOWN INDICATION
     Route: 065
  12. FOSAMAX [Concomitant]
     Indication: PRODUCT USED FOR UNKNOWN INDICATION
     Route: 065
  13. OSCAL 500-D [Concomitant]
     Indication: PRODUCT USED FOR UNKNOWN INDICATION
     Route: 065
  14. ONE A DAY ESSENTIAL [Concomitant]
     Indication: PRODUCT USED FOR UNKNOWN INDICATION
     Route: 065
  15. PRILOSEC [Concomitant]
     Indication: PRODUCT USED FOR UNKNOWN INDICATION
     Route: 065
  16. ASPIRIN [Concomitant]
     Indication: PRODUCT USED FOR UNKNOWN INDICATION
     Route: 065
  17. NIACIN [Concomitant]
     Indication: PRODUCT USED FOR UNKNOWN INDICATION
     Route: 065
  18. FERROUS SULFATE [Concomitant]
     Indication: PRODUCT USED FOR UNKNOWN INDICATION
     Route: 065
  19. ASCORBIC ACID [Concomitant]
     Indication: PRODUCT USED FOR UNKNOWN INDICATION
     Route: 065
  20. VITAMIN B-12 [Concomitant]
     Indication: PRODUCT USED FOR UNKNOWN INDICATION
     Route: 065
  21. IMODIUM A-D [Concomitant]
     Indication: PRODUCT USED FOR UNKNOWN INDICATION
     Route: 065
  22. LABETALOL HCL [Concomitant]
     Indication: PRODUCT USED FOR UNKNOWN INDICATION
     Route: 065
  23. DOCUSATE SODIUM [Concomitant]
     Indication: PRODUCT USED FOR UNKNOWN INDICATION
     Route: 065
  24. INSULIN [Concomitant]
     Indication: PRODUCT USED FOR UNKNOWN INDICATION
     Route: 065
  25. LASIX [Concomitant]
     Indication: PRODUCT USED FOR UNKNOWN INDICATION
     Route: 065
  26. COREG [Concomitant]
     Indication: PRODUCT USED FOR UNKNOWN INDICATION
     Route: 065
  27. MORPHINE [Concomitant]
     Indication: PRODUCT USED FOR UNKNOWN INDICATION
     Route: 065
  28. AMIODARONE HCL [Concomitant]
     Indication: PRODUCT USED FOR UNKNOWN INDICATION
     Route: 065
  29. ALBUTEIN [Concomitant]
     Indication: PRODUCT USED FOR UNKNOWN INDICATION
     Route: 065
  30. SIMVASTATIN [Concomitant]
     Indication: PRODUCT USED FOR UNKNOWN INDICATION
     Route: 065
  31. PANTOPRAZOLE [Concomitant]
     Indication: PRODUCT USED FOR UNKNOWN INDICATION
     Route: 065
  32. MAGNESIUM SULFATE [Concomitant]
     Indication: PRODUCT USED FOR UNKNOWN INDICATION
     Route: 042
  33. ZESTRIL [Concomitant]
     Indication: PRODUCT USED FOR UNKNOWN INDICATION
     Route: 065
  34. DIPHENHYDRAMINE HCL [Concomitant]
     Indication: PRODUCT USED FOR UNKNOWN INDICATION
     Route: 065
  35. NOREPINEPHRINE [Concomitant]
     Indication: PRODUCT USED FOR UNKNOWN INDICATION
     Route: 065
  36. ANCEF [Concomitant]
     Indication: PRODUCT USED FOR UNKNOWN INDICATION
     Route: 065

REACTIONS (32)
  - ANGIOEDEMA [None]
  - ASTHENIA [None]
  - ATRIAL FIBRILLATION [None]
  - BLISTER [None]
  - CARDIAC ARREST [None]
  - CARDIAC FAILURE CONGESTIVE [None]
  - CARDIOMYOPATHY [None]
  - CARDIOVASCULAR DECONDITIONING [None]
  - CEREBRAL ATROPHY [None]
  - COAGULOPATHY [None]
  - DECREASED APPETITE [None]
  - DYSPHAGIA [None]
  - HEART VALVE INCOMPETENCE [None]
  - HEPARIN-INDUCED THROMBOCYTOPENIA [None]
  - HYPOKALAEMIA [None]
  - HYPONATRAEMIA [None]
  - HYPOVOLAEMIA [None]
  - MENTAL STATUS CHANGES [None]
  - MULTI-ORGAN FAILURE [None]
  - MYOCARDIAL INFARCTION [None]
  - OEDEMA [None]
  - RASH [None]
  - RENAL FAILURE [None]
  - RESPIRATORY FAILURE [None]
  - RETROPERITONEAL HAEMATOMA [None]
  - SEPSIS [None]
  - SEPTIC SHOCK [None]
  - SHOCK HAEMORRHAGIC [None]
  - THROMBOCYTOPENIA [None]
  - URINARY TRACT INFECTION [None]
  - VENTRICULAR TACHYCARDIA [None]
  - WOUND SECRETION [None]
